FAERS Safety Report 7823448-1 (Version None)
Quarter: 2011Q4

REPORT INFORMATION
  Report Type: 
  Country: None (occurrence: None)
  Receive Date: 20111019
  Receipt Date: 20111012
  Transmission Date: 20120403
  Serious: Yes (Other)
  Sender: FDA-Public Use
  Company Number: BE-UCBSA-033943

PATIENT
  Sex: Male

DRUGS (2)
  1. OXCARBAZEPINE [Concomitant]
  2. VIMPAT [Suspect]
     Dosage: 200MG

REACTIONS (1)
  - INTENTIONAL SELF-INJURY [None]
